FAERS Safety Report 10018377 (Version 2)
Quarter: 2014Q2

REPORT INFORMATION
  Report Type: Report from Study
  Country: JP (occurrence: JP)
  Receive Date: 20140318
  Receipt Date: 20140617
  Transmission Date: 20141212
  Serious: Yes (Death, Life-Threatening, Hospitalization)
  Sender: FDA-Public Use
  Company Number: JP-SA-2014SA033628

PATIENT
  Age: 26 Year
  Sex: Female
  Weight: 34.8 kg

DRUGS (45)
  1. THYMOGLOBULINE [Suspect]
     Indication: BONE MARROW CONDITIONING REGIMEN
     Route: 042
     Dates: start: 20131008, end: 20131008
  2. OMEPRAL [Concomitant]
     Indication: PROPHYLAXIS AGAINST GASTROINTESTINAL ULCER
     Dates: start: 20131013, end: 20140113
  3. LASIX [Concomitant]
     Indication: PROPHYLAXIS
     Dates: start: 20130911, end: 20140113
  4. ATARAX-P [Concomitant]
     Indication: INSOMNIA
     Route: 051
     Dates: start: 20130907, end: 20140113
  5. AMBISOME [Concomitant]
     Indication: SEPSIS
     Route: 042
     Dates: start: 20131011, end: 20131015
  6. AMBISOME [Concomitant]
     Indication: CELLULITIS
     Route: 042
     Dates: start: 20131011, end: 20131015
  7. AMBISOME [Concomitant]
     Indication: PNEUMONIA
     Route: 042
     Dates: start: 20131011, end: 20131015
  8. ANTHROBIN P [Concomitant]
     Indication: DISSEMINATED INTRAVASCULAR COAGULATION
     Dates: start: 20131007, end: 20131009
  9. CRAVIT [Concomitant]
     Indication: SEPSIS
     Route: 041
     Dates: start: 20131008, end: 20140113
  10. CRAVIT [Concomitant]
     Indication: CELLULITIS
     Route: 041
     Dates: start: 20131008, end: 20140113
  11. CRAVIT [Concomitant]
     Indication: PNEUMONIA
     Route: 041
     Dates: start: 20131008, end: 20140113
  12. SOLU-CORTEF [Concomitant]
     Indication: PYREXIA
     Dates: start: 20130910, end: 20140113
  13. BACTRAMIN [Concomitant]
     Indication: SEPSIS
     Dates: start: 20131008, end: 20131011
  14. BACTRAMIN [Concomitant]
     Indication: CELLULITIS
     Dates: start: 20131008, end: 20131011
  15. BACTRAMIN [Concomitant]
     Indication: PNEUMONIA
     Dates: start: 20131008, end: 20131011
  16. VICCLOX [Concomitant]
     Indication: SEPSIS
     Route: 041
     Dates: start: 20130910, end: 20140113
  17. VICCLOX [Concomitant]
     Indication: CELLULITIS
     Route: 041
     Dates: start: 20130910, end: 20140113
  18. VICCLOX [Concomitant]
     Indication: PNEUMONIA
     Route: 041
     Dates: start: 20130910, end: 20140113
  19. HUMULIN R [Concomitant]
     Indication: DIABETES MELLITUS
     Dates: start: 20130909, end: 20140113
  20. FUNGUARD [Concomitant]
     Indication: SEPSIS
     Dates: start: 20130906, end: 20140113
  21. FUNGUARD [Concomitant]
     Indication: CELLULITIS
     Dates: start: 20130906, end: 20140113
  22. FUNGUARD [Concomitant]
     Indication: PNEUMONIA
     Dates: start: 20130906, end: 20140113
  23. FENTANYL [Concomitant]
     Indication: PAIN
     Dates: start: 20130924, end: 20140113
  24. CEFTAZIDIME [Concomitant]
     Indication: SEPSIS
     Route: 042
     Dates: start: 20131008, end: 20140113
  25. CEFTAZIDIME [Concomitant]
     Indication: CELLULITIS
     Route: 042
     Dates: start: 20131008, end: 20140113
  26. CEFTAZIDIME [Concomitant]
     Indication: PNEUMONIA
     Route: 042
     Dates: start: 20131008, end: 20140113
  27. LEVEMIR [Concomitant]
     Indication: DIABETES MELLITUS
     Dates: start: 20131009, end: 20131011
  28. ROPION [Concomitant]
     Indication: PYREXIA
     Route: 042
     Dates: start: 20131006, end: 20131009
  29. ZYVOX [Concomitant]
     Indication: SEPSIS
     Dates: start: 20131007, end: 20131008
  30. ZYVOX [Concomitant]
     Indication: CELLULITIS
     Dates: start: 20131007, end: 20131008
  31. ZYVOX [Concomitant]
     Indication: PNEUMONIA
     Dates: start: 20131007, end: 20131008
  32. MEROPEN [Concomitant]
     Indication: SEPSIS
     Dates: start: 20131008, end: 20131008
  33. MEROPEN [Concomitant]
     Indication: CELLULITIS
     Dates: start: 20131008, end: 20131008
  34. MEROPEN [Concomitant]
     Indication: PNEUMONIA
     Dates: start: 20131008, end: 20131008
  35. BUSCOPAN [Concomitant]
     Indication: ABDOMINAL PAIN
     Dates: start: 20131008, end: 20131008
  36. ERYTHROCIN [Concomitant]
     Indication: SEPSIS
     Dates: start: 20131012, end: 20131029
  37. ERYTHROCIN [Concomitant]
     Indication: CELLULITIS
     Dates: start: 20131012, end: 20131029
  38. ERYTHROCIN [Concomitant]
     Indication: PNEUMONIA
     Dates: start: 20131012, end: 20131029
  39. ALBUMINAR [Concomitant]
     Indication: HYPOALBUMINAEMIA
     Route: 042
     Dates: start: 20131008, end: 20131031
  40. SILECE [Concomitant]
     Indication: INSOMNIA
     Dates: start: 20131016, end: 20131018
  41. BAKTAR [Concomitant]
     Indication: SEPSIS
     Route: 048
     Dates: start: 20131012, end: 20131030
  42. BAKTAR [Concomitant]
     Indication: CELLULITIS
     Route: 048
     Dates: start: 20131012, end: 20131030
  43. BAKTAR [Concomitant]
     Indication: PNEUMONIA
     Route: 048
     Dates: start: 20131012, end: 20131030
  44. BROTIZOLAM [Concomitant]
     Indication: INSOMNIA
     Route: 048
     Dates: start: 20131014, end: 20131016
  45. ROHYPNOL [Concomitant]
     Indication: INSOMNIA
     Route: 048
     Dates: start: 20131008, end: 20131011

REACTIONS (4)
  - Venoocclusive liver disease [Fatal]
  - Cardiac failure congestive [Not Recovered/Not Resolved]
  - Renal impairment [Not Recovered/Not Resolved]
  - Pneumonia [Not Recovered/Not Resolved]
